FAERS Safety Report 17565219 (Version 1)
Quarter: 2020Q1

REPORT INFORMATION
  Report Type: Report from Study
  Country: CO (occurrence: CO)
  Receive Date: 20200320
  Receipt Date: 20200320
  Transmission Date: 20200409
  Serious: Yes (Death)
  Sender: FDA-Public Use
  Company Number: CO-ACTELION-A-CH2019-189754

PATIENT
  Age: 73 Year
  Sex: Female
  Weight: 51 kg

DRUGS (4)
  1. OPSUMIT [Suspect]
     Active Substance: MACITENTAN
     Dosage: 10 MG, QD
     Route: 048
     Dates: start: 201908, end: 2020
  2. SILDENAFIL. [Concomitant]
     Active Substance: SILDENAFIL
     Dosage: UNK
     Route: 048
     Dates: start: 201811
  3. OPSUMIT [Suspect]
     Active Substance: MACITENTAN
     Indication: PULMONARY ARTERIAL HYPERTENSION
     Dosage: 10 MG, QD
     Route: 048
     Dates: start: 201811, end: 2018
  4. OPSUMIT [Suspect]
     Active Substance: MACITENTAN
     Dosage: 10 MG, QD
     Route: 048
     Dates: start: 201905, end: 201908

REACTIONS (6)
  - Death [Fatal]
  - Pain in extremity [Not Recovered/Not Resolved]
  - Insomnia [Unknown]
  - Hypoaesthesia [Not Recovered/Not Resolved]
  - Feeling abnormal [Unknown]
  - Adverse event [Unknown]

NARRATIVE: CASE EVENT DATE: 202001
